FAERS Safety Report 5690670-2 (Version None)
Quarter: 2008Q2

REPORT INFORMATION
  Report Type: 
  Country: None (occurrence: None)
  Receive Date: 20080401
  Receipt Date: 20080320
  Transmission Date: 20081010
  Serious: Yes (Other)
  Sender: FDA-Public Use
  Company Number: CH-GILEAD-2008-0015803

PATIENT
  Age: 42 Year
  Sex: Female

DRUGS (4)
  1. TRUVADA [Suspect]
     Indication: HIV INFECTION
     Route: 048
     Dates: start: 20080129, end: 20080208
  2. BARACLUDE [Suspect]
     Indication: HEPATITIS VIRAL
     Route: 048
     Dates: start: 20061116, end: 20080128
  3. RETROVIR [Suspect]
     Indication: HIV INFECTION
     Route: 048
     Dates: start: 20080129, end: 20080208
  4. KALETRA [Suspect]
     Indication: HIV INFECTION
     Route: 048
     Dates: start: 20080129, end: 20080208

REACTIONS (4)
  - ABORTION [None]
  - HYPERSENSITIVITY [None]
  - INTRA-UTERINE DEATH [None]
  - PREGNANCY [None]
